FAERS Safety Report 5858870-6 (Version None)
Quarter: 2008Q3

REPORT INFORMATION
  Report Type: 
  Country: None (occurrence: None)
  Receive Date: 20080826
  Receipt Date: 20080821
  Transmission Date: 20090109
  Serious: Yes (Hospitalization, Disabling, Other)
  Sender: FDA-Public Use
  Company Number: US-MERCK-0805USA00921

PATIENT
  Age: 45 Year
  Sex: Female

DRUGS (2)
  1. FOSAMAX [Suspect]
     Indication: OSTEOPENIA
     Route: 048
     Dates: start: 20010101, end: 20031001
  2. FOSAMAX [Suspect]
     Indication: OSTEOPOROSIS
     Route: 048
     Dates: start: 20010101, end: 20031001

REACTIONS (15)
  - ABSCESS [None]
  - ANXIETY [None]
  - BONE DISORDER [None]
  - CHEILITIS [None]
  - CROHN'S DISEASE [None]
  - DEPRESSION [None]
  - EDENTULOUS [None]
  - FIBROSIS [None]
  - GASTROINTESTINAL DISORDER [None]
  - OSTEOARTHRITIS [None]
  - OSTEOMYELITIS [None]
  - OSTEONECROSIS [None]
  - PNEUMONIA [None]
  - SYSTEMIC LUPUS ERYTHEMATOSUS [None]
  - UTERINE DISORDER [None]
